FAERS Safety Report 14225021 (Version 6)
Quarter: 2024Q1

REPORT INFORMATION
  Report Type: Other
  Country: GB (occurrence: None)
  Receive Date: 20171127
  Receipt Date: 20240123
  Transmission Date: 20240410
  Serious: Yes (Other)
  Sender: FDA-Public Use
  Company Number: GB-ROCHE-1711532

PATIENT
  Sex: Female

DRUGS (9)
  1. TOCILIZUMAB [Suspect]
     Active Substance: TOCILIZUMAB
     Indication: Rheumatoid arthritis
     Route: 058
     Dates: start: 20150714
  2. LOPERAMIDE [Concomitant]
     Active Substance: LOPERAMIDE
  3. AMITRIPTYLINE [Concomitant]
     Active Substance: AMITRIPTYLINE
  4. LEVOTHYROXINE [Concomitant]
     Active Substance: LEVOTHYROXINE\LEVOTHYROXINE SODIUM
  5. LOSARTAN [Concomitant]
     Active Substance: LOSARTAN
  6. METFORMIN [Concomitant]
     Active Substance: METFORMIN HYDROCHLORIDE
  7. OMEPRAZOLE [Concomitant]
     Active Substance: OMEPRAZOLE
  8. COCODAMOL [Concomitant]
     Active Substance: ACETAMINOPHEN\CODEINE PHOSPHATE
  9. PREDNISOLONE [Concomitant]
     Active Substance: PREDNISOLONE

REACTIONS (10)
  - Bone disorder [Unknown]
  - Arthropathy [Unknown]
  - Arthralgia [Unknown]
  - Upper limb fracture [Unknown]
  - Gastric infection [Unknown]
  - Lower respiratory tract infection [Unknown]
  - Bronchitis [Unknown]
  - Pain [Unknown]
  - Gastrointestinal disorder [Unknown]
  - Malaise [Unknown]
